FAERS Safety Report 19786673 (Version 8)
Quarter: 2022Q4

REPORT INFORMATION
  Report Type: Report from Study
  Country: DE (occurrence: DE)
  Receive Date: 20210903
  Receipt Date: 20221031
  Transmission Date: 20230113
  Serious: Yes (Hospitalization, Other)
  Sender: FDA-Public Use
  Company Number: DE-SHIRE-DE202026715

PATIENT
  Age: 15 Year
  Sex: Female
  Weight: 58 kg

DRUGS (16)
  1. HYDROCORTISONE [Suspect]
     Active Substance: HYDROCORTISONE
     Indication: Adrenal insufficiency
     Dosage: 10 MILLIGRAM  (10 MILLIGRAM, 2-1-0)
     Route: 065
  2. HYDROCORTISONE [Suspect]
     Active Substance: HYDROCORTISONE
     Indication: Adrenocortical insufficiency acute
  3. PARATHYROID HORMONE [Suspect]
     Active Substance: PARATHYROID HORMONE
     Indication: Hypoparathyroidism
     Dosage: START DATE: DEC-2020
     Route: 065
  4. PARATHYROID HORMONE [Suspect]
     Active Substance: PARATHYROID HORMONE
     Dosage: (25 MICROGRAM, 1X/DAY, IN THE MORNING 4 CLICKS, IN EVENING FULL DOSE)
     Route: 058
     Dates: start: 20200817
  5. PARATHYROID HORMONE [Suspect]
     Active Substance: PARATHYROID HORMONE
     Dosage: (25 MICROGRAM, 1X/DAY, IN THE MORNING 4 CLICKS, IN EVENING FULL DOSE)
     Route: 058
     Dates: start: 20200817
  6. PARATHYROID HORMONE [Suspect]
     Active Substance: PARATHYROID HORMONE
     Dosage: (25 MICROGRAM, 1X/DAY, IN THE MORNING 4 CLICKS, IN EVENING FULL DOSE)
     Route: 058
     Dates: start: 20200817
  7. PARATHYROID HORMONE [Suspect]
     Active Substance: PARATHYROID HORMONE
     Dosage: 25 MICROGRAM, QD
     Route: 058
     Dates: start: 20200817
  8. PARATHYROID HORMONE [Suspect]
     Active Substance: PARATHYROID HORMONE
     Dosage: 50 MICROGRAM, QD, (25 MICROGRAM, BID)
     Route: 058
     Dates: start: 20200817
  9. ROCALTROL [Concomitant]
     Active Substance: CALCITRIOL
     Indication: Hypoparathyroidism
     Dosage: UNK
     Route: 065
  10. TRUSOPT [Concomitant]
     Active Substance: DORZOLAMIDE HYDROCHLORIDE
     Indication: Retinal dystrophy
     Dosage: UNK DROPS
     Route: 065
  11. TRUSOPT [Concomitant]
     Active Substance: DORZOLAMIDE HYDROCHLORIDE
     Dosage: UNK
     Route: 065
  12. CALCIUM [Concomitant]
     Active Substance: CALCIUM
     Indication: Hypoparathyroidism
     Dosage: 500 MILLIGRAM, QD, 500 MG, (2 TO 3 TIMES A DAY)
     Route: 048
  13. CALCIUM [Concomitant]
     Active Substance: CALCIUM
     Indication: Hypocalcaemia
     Dosage: UNK
     Route: 065
  14. CALCIUM [Concomitant]
     Active Substance: CALCIUM
     Dosage: 500 MILLIGRAM, (2-3X PER DAY 500 MG)
     Route: 048
  15. FLUDROCORTISONE [Concomitant]
     Active Substance: FLUDROCORTISONE
     Indication: Adrenocortical insufficiency acute
     Dosage: UNK
     Route: 065
  16. FLUDROCORTISONE [Concomitant]
     Active Substance: FLUDROCORTISONE
     Indication: Adrenal insufficiency

REACTIONS (17)
  - Hypocalcaemia [Recovered/Resolved]
  - Discomfort [Recovered/Resolved]
  - Product use issue [Unknown]
  - Restlessness [Not Recovered/Not Resolved]
  - Off label use [Not Recovered/Not Resolved]
  - Candida infection [Recovering/Resolving]
  - Diarrhoea [Recovering/Resolving]
  - Blood calcium increased [Not Recovered/Not Resolved]
  - Keratitis [Recovering/Resolving]
  - Nausea [Not Recovered/Not Resolved]
  - Tachycardia [Recovered/Resolved]
  - Fatigue [Recovered/Resolved]
  - Chvostek^s sign [Recovered/Resolved]
  - Abdominal pain upper [Not Recovered/Not Resolved]
  - Rash [Not Recovered/Not Resolved]
  - Device issue [Recovered/Resolved]
  - Abdominal discomfort [Recovered/Resolved]

NARRATIVE: CASE EVENT DATE: 20200817
